FAERS Safety Report 25037046 (Version 1)
Quarter: 2025Q1

REPORT INFORMATION
  Report Type: Spontaneous
  Country: US (occurrence: US)
  Receive Date: 20250304
  Receipt Date: 20250304
  Transmission Date: 20250409
  Serious: No
  Sender: MYLAN
  Company Number: US-MYLANLABS-2025M1016878

PATIENT

DRUGS (2)
  1. LEVOTHYROXINE SODIUM [Suspect]
     Active Substance: LEVOTHYROXINE SODIUM
     Indication: Thyroid disorder
     Dosage: UNK, QD (7 DAYS A WEEK)
     Dates: start: 202401
  2. LEVOTHYROXINE SODIUM [Suspect]
     Active Substance: LEVOTHYROXINE SODIUM

REACTIONS (13)
  - Dizziness [Unknown]
  - Disturbance in attention [Unknown]
  - Nail growth abnormal [Unknown]
  - Malaise [Unknown]
  - Palpitations [Unknown]
  - Insomnia [Unknown]
  - Alopecia [Unknown]
  - Tremor [Unknown]
  - Fatigue [Unknown]
  - Therapeutic response changed [Unknown]
  - Recalled product administered [Unknown]
  - Off label use [Unknown]
  - Recalled product [Unknown]
